FAERS Safety Report 7688181-8 (Version None)
Quarter: 2011Q3

REPORT INFORMATION
  Report Type: 
  Country: None (occurrence: None)
  Receive Date: 20110817
  Receipt Date: 20110429
  Transmission Date: 20111222
  Serious: No
  Sender: FDA-Public Use
  Company Number: US-GLAXOSMITHKLINE-A0925096A

PATIENT
  Age: 33 Year
  Sex: Female

DRUGS (6)
  1. DILAUDID [Concomitant]
  2. DULCOLAX [Concomitant]
  3. MORPHINE [Concomitant]
  4. VOTRIENT [Suspect]
     Indication: RENAL CELL CARCINOMA
     Dosage: 800MG PER DAY
     Route: 048
     Dates: start: 20110407
  5. LORTAB [Concomitant]
  6. XANAX [Concomitant]

REACTIONS (1)
  - CHROMATURIA [None]
